FAERS Safety Report 14602475 (Version 8)
Quarter: 2019Q3

REPORT INFORMATION
  Report Type: Spontaneous
  Country: US (occurrence: US)
  Receive Date: 20180306
  Receipt Date: 20190926
  Transmission Date: 20191004
  Serious: No
  Sender: FDA-Public Use
  Company Number: US-PFIZER INC-2018086790

PATIENT
  Age: 48 Year
  Sex: Female
  Weight: 58 kg

DRUGS (9)
  1. MIRENA [Concomitant]
     Active Substance: LEVONORGESTREL
     Dosage: UNK
  2. LYRICA [Suspect]
     Active Substance: PREGABALIN
     Indication: PAIN
     Dosage: 150 MG, DAILY (TAKING 3 A DAY, 2 IN THE EVENING AND 1 IN THE MORNING)
     Route: 048
  3. FLONASE [Concomitant]
     Active Substance: FLUTICASONE PROPIONATE
     Indication: PARANASAL SINUS DISCOMFORT
     Dosage: 2 SPRAYS EACH NOSTRILS, 1X/DAY
     Route: 045
     Dates: end: 20180219
  4. RANITIDINE. [Concomitant]
     Active Substance: RANITIDINE
     Indication: HYPERSENSITIVITY
     Dosage: 150 MG, 2X/DAY
     Route: 048
  5. LYRICA [Suspect]
     Active Substance: PREGABALIN
     Indication: FIBROMYALGIA
     Dosage: 50 MG, UNK
     Route: 048
  6. CYMBALTA [Concomitant]
     Active Substance: DULOXETINE HYDROCHLORIDE
     Indication: FIBROMYALGIA
     Dosage: 30 MG, UNK
  7. PREDNISONE. [Concomitant]
     Active Substance: PREDNISONE
     Indication: HYPERSENSITIVITY
     Dosage: UNK [10MG TAPERING DOSE BY MOUTH CURRENTLY ON HALF OF A TABLET]
     Route: 048
  8. LYRICA [Suspect]
     Active Substance: PREGABALIN
     Dosage: 225 MG, DAILY (TAKES 1 CAPSULE IN THE MORNING, AND 2 CAPSULES AT NIGHT)
     Route: 048
  9. CETIRIZINE [Concomitant]
     Active Substance: CETIRIZINE HYDROCHLORIDE
     Indication: HYPERSENSITIVITY
     Dosage: 10 MG, 2X/DAY
     Route: 048

REACTIONS (8)
  - Malaise [Unknown]
  - Abdominal pain upper [Recovering/Resolving]
  - Withdrawal syndrome [Unknown]
  - Poor quality product administered [Unknown]
  - Intentional product use issue [Unknown]
  - Nausea [Recovered/Resolved]
  - Headache [Recovered/Resolved]
  - Diarrhoea [Recovered/Resolved]

NARRATIVE: CASE EVENT DATE: 20190319
